FAERS Safety Report 22287125 (Version 1)
Quarter: 2023Q2

REPORT INFORMATION
  Report Type: Spontaneous
  Country: CN (occurrence: CN)
  Receive Date: 20230505
  Receipt Date: 20230505
  Transmission Date: 20230722
  Serious: Yes (Other)
  Sender: FDA-Public Use
  Company Number: None

PATIENT
  Age: 39 Year
  Sex: Female
  Weight: 52 kg

DRUGS (4)
  1. CYCLOPHOSPHAMIDE [Suspect]
     Active Substance: CYCLOPHOSPHAMIDE
     Indication: Acute lymphocytic leukaemia
     Dosage: 1 G, QW, DILUTED WITH 500 ML OF 0.9% SODIUM CHLORIDE, ROUTE: INTRA-PUMP INJECTION
     Route: 050
     Dates: start: 20230331, end: 20230407
  2. SODIUM CHLORIDE [Suspect]
     Active Substance: SODIUM CHLORIDE
     Indication: Medication dilution
     Dosage: 0.9% 500 ML, QW, USED TO DILUTE 1 G CYCLOPHOSPHAMIDE, ROUTE: INTRA-PUMP INJECTION
     Route: 050
     Dates: start: 20230331, end: 20230407
  3. DEXTROSE [Suspect]
     Active Substance: DEXTROSE\DEXTROSE MONOHYDRATE
     Indication: Medication dilution
     Dosage: 5% 250 ML, 3 DAYS PER WEEK, USED TO DILUTE 0.1 G CYTARABINE, ROUTE: INTRA-PUMP INJECTION
     Route: 050
     Dates: start: 20230331, end: 20230407
  4. CYTARABINE [Suspect]
     Active Substance: CYTARABINE
     Indication: Acute lymphocytic leukaemia
     Dosage: 0.1 G, 3 DAYS PER WEEK, DILUTED WITH 250 ML OF 5% GLUCOSE, ROUTE: INTRA-PUMP INJECTION
     Route: 050
     Dates: start: 20230331, end: 20230409

REACTIONS (1)
  - Myelosuppression [Recovering/Resolving]

NARRATIVE: CASE EVENT DATE: 20230415
